FAERS Safety Report 17689024 (Version 4)
Quarter: 2020Q4

REPORT INFORMATION
  Report Type: Report from Study
  Country: US (occurrence: US)
  Receive Date: 20200421
  Receipt Date: 20201029
  Transmission Date: 20210113
  Serious: Yes (Hospitalization)
  Sender: FDA-Public Use
  Company Number: NVSC2020US105331

PATIENT
  Age: 27 Year
  Sex: Female

DRUGS (1)
  1. ENTRESTO [Suspect]
     Active Substance: SACUBITRIL\VALSARTAN
     Indication: PRODUCT USED FOR UNKNOWN INDICATION
     Dosage: 1 DF, BID (24MG/26MG)
     Route: 048
     Dates: start: 20200318, end: 202010

REACTIONS (7)
  - Renal disorder [Unknown]
  - Eye swelling [Unknown]
  - Cardiomyopathy [Recovered/Resolved]
  - Energy increased [Unknown]
  - Hypertension [Unknown]
  - Feeling abnormal [Unknown]
  - Systemic lupus erythematosus [Unknown]

NARRATIVE: CASE EVENT DATE: 202004
